FAERS Safety Report 10552690 (Version 1)
Quarter: 2014Q4

REPORT INFORMATION
  Report Type: Spontaneous
  Country: US (occurrence: US)
  Receive Date: 20141029
  Receipt Date: 20141029
  Transmission Date: 20150529
  Serious: No
  Sender: FDA-Public Use
  Company Number: US-B.I. PHARMACEUTICALS,INC./RIDGEFIELD-2014-BI-50205BP

PATIENT
  Age: 61 Year
  Sex: Male
  Weight: 72.57 kg

DRUGS (2)
  1. SPIRIVA [Suspect]
     Active Substance: TIOTROPIUM BROMIDE MONOHYDRATE
     Indication: EMPHYSEMA
     Dosage: 18 MCG
     Route: 055
     Dates: start: 20140923
  2. SPIRIVA [Suspect]
     Active Substance: TIOTROPIUM BROMIDE MONOHYDRATE
     Dosage: 18 MCG
     Route: 048
     Dates: start: 20141017, end: 20141017

REACTIONS (1)
  - Incorrect route of drug administration [Recovered/Resolved]

NARRATIVE: CASE EVENT DATE: 20141017
